FAERS Safety Report 7641680-7 (Version None)
Quarter: 2011Q3

REPORT INFORMATION
  Report Type: 
  Country: None (occurrence: None)
  Receive Date: 20110728
  Receipt Date: 20100317
  Transmission Date: 20111222
  Serious: Yes (Hospitalization)
  Sender: FDA-Public Use
  Company Number: DE-GLAXOSMITHKLINE-B0642717A

PATIENT
  Sex: Female
  Weight: 65 kg

DRUGS (2)
  1. BLINDED TRIAL MEDICATION [Suspect]
     Indication: OVARIAN CANCER
     Dosage: 800MG PER DAY
     Route: 048
     Dates: start: 20100306, end: 20100314
  2. TOPOTECAN [Suspect]
     Indication: OVARIAN CANCER
     Dosage: 2.06MG CYCLIC
     Route: 042
     Dates: start: 20100301, end: 20100305

REACTIONS (5)
  - PRURITUS [None]
  - PALMAR-PLANTAR ERYTHRODYSAESTHESIA SYNDROME [None]
  - PYREXIA [None]
  - GENERAL PHYSICAL HEALTH DETERIORATION [None]
  - RASH [None]
